FAERS Safety Report 7438543-9 (Version None)
Quarter: 2011Q2

REPORT INFORMATION
  Report Type: 
  Country: None (occurrence: None)
  Receive Date: 20110404
  Receipt Date: 20110324
  Transmission Date: 20111010
  Serious: Yes (Other)
  Sender: FDA-Public Use
  Company Number: 2010027189

PATIENT
  Age: 73 Year
  Sex: Female

DRUGS (4)
  1. VIVAGLOBIN [Suspect]
     Indication: WALDENSTROM'S MACROGLOBULINAEMIA
     Dosage: 2 DF 1X/WEEK, SUBCUTANEOUS; SUBCUTANEOUS
     Route: 058
     Dates: start: 20101004
  2. VIVAGLOBIN [Suspect]
     Indication: HYPOGAMMAGLOBULINAEMIA
     Dosage: 2 DF 1X/WEEK, SUBCUTANEOUS; SUBCUTANEOUS
     Route: 058
     Dates: start: 20101004
  3. VIVAGLOBIN [Suspect]
     Indication: WALDENSTROM'S MACROGLOBULINAEMIA
     Dosage: 2 DF 1X/WEEK, SUBCUTANEOUS; SUBCUTANEOUS
     Route: 058
     Dates: start: 20100920
  4. VIVAGLOBIN [Suspect]
     Indication: HYPOGAMMAGLOBULINAEMIA
     Dosage: 2 DF 1X/WEEK, SUBCUTANEOUS; SUBCUTANEOUS
     Route: 058
     Dates: start: 20100920

REACTIONS (7)
  - DIPLOPIA [None]
  - OPHTHALMOPLEGIA [None]
  - BALANCE DISORDER [None]
  - ISCHAEMIC STROKE [None]
  - DYSARTHRIA [None]
  - CEREBELLAR SYNDROME [None]
  - DIZZINESS [None]
